FAERS Safety Report 9796548 (Version 1)
Quarter: 2014Q1

REPORT INFORMATION
  Report Type: Spontaneous
  Country: DK (occurrence: DK)
  Receive Date: 20140103
  Receipt Date: 20140103
  Transmission Date: 20141002
  Serious: Yes (Other)
  Sender: FDA-Public Use
  Company Number: DK-ACTAVIS-2013-24061

PATIENT
  Sex: Female

DRUGS (3)
  1. ANTABUS [Suspect]
     Indication: ALCOHOL ABUSE
     Dosage: 200 MG, UNK
     Route: 065
     Dates: start: 20131022, end: 20131217
  2. OMEPRAZOLE [Concomitant]
     Indication: ULCER
     Dosage: 20 MG, DAILY
     Route: 065
  3. BRICANYL COMP [Suspect]
     Indication: PNEUMONIA
     Dosage: UNK AS NEEDED
     Route: 065

REACTIONS (5)
  - Dyspnoea [Unknown]
  - Weight increased [Unknown]
  - Gait disturbance [Unknown]
  - Pain in extremity [Unknown]
  - Pain [Unknown]
